FAERS Safety Report 5236214-0 (Version None)
Quarter: 2007Q1

REPORT INFORMATION
  Report Type: 
  Country: None (occurrence: None)
  Receive Date: 20070212
  Receipt Date: 20070131
  Transmission Date: 20070707
  Serious: Yes (Death, Life-Threatening, Hospitalization)
  Sender: FDA-Public Use
  Company Number: GB-PFIZER INC-2006130494

PATIENT
  Sex: Male
  Weight: 53.6 kg

DRUGS (8)
  1. SU-011,248 [Suspect]
     Indication: RENAL CELL CARCINOMA STAGE UNSPECIFIED
     Route: 048
     Dates: start: 20060802, end: 20061011
  2. MORPHINE SULFATE [Concomitant]
     Route: 048
     Dates: start: 20060705, end: 20061023
  3. DOMPERIDONE [Concomitant]
     Route: 048
     Dates: start: 20060801, end: 20061023
  4. PARACETAMOL [Concomitant]
     Route: 048
     Dates: start: 20060705, end: 20061023
  5. CALCIUM RESONIUM [Concomitant]
     Route: 048
     Dates: start: 20061001, end: 20061023
  6. LACTULOSE [Concomitant]
     Route: 048
     Dates: start: 20061001, end: 20061023
  7. ORAMORPH SR [Concomitant]
     Route: 048
     Dates: start: 20060705, end: 20061001
  8. LORAZEPAM [Concomitant]
     Route: 048
     Dates: start: 20060816, end: 20061001

REACTIONS (2)
  - METASTATIC NEOPLASM [None]
  - RENAL FAILURE ACUTE [None]
